FAERS Safety Report 25347501 (Version 1)
Quarter: 2025Q2

REPORT INFORMATION
  Report Type: Spontaneous
  Country: US (occurrence: None)
  Receive Date: 20250521
  Receipt Date: 20250521
  Transmission Date: 20250716
  Serious: Yes (Other)
  Sender: FDA-CTU
  Company Number: None

PATIENT
  Age: 53 Year
  Sex: Female
  Weight: 69.75 kg

DRUGS (9)
  1. TOBRAMYCIN AND DEXAMETHASONE [Suspect]
     Active Substance: DEXAMETHASONE\TOBRAMYCIN
     Indication: Eye infection
     Dosage: 1 DROP*S) TWICE A DAY OPTHALMIC
     Route: 047
     Dates: start: 20250519, end: 20250520
  2. Meteoprolol [Concomitant]
  3. Vital proteins marine collagen [Concomitant]
  4. choc;ate plant protein powder [Concomitant]
  5. Thorne NAC [Concomitant]
  6. vitamedica bromelain with quercetin [Concomitant]
  7. biosil collagen generator [Concomitant]
  8. natural factors curcumin dich double stength theracurmin [Concomitant]
  9. jarrow formulas vitamin d3 [Concomitant]

REACTIONS (8)
  - Palpitations [None]
  - Visual impairment [None]
  - Fall [None]
  - Contusion [None]
  - Nausea [None]
  - Cold sweat [None]
  - Tinnitus [None]
  - Atrial fibrillation [None]

NARRATIVE: CASE EVENT DATE: 20250520
